FAERS Safety Report 19260728 (Version 2)
Quarter: 2021Q2

REPORT INFORMATION
  Report Type: Spontaneous
  Country: US (occurrence: US)
  Receive Date: 20210515
  Receipt Date: 20210617
  Transmission Date: 20210717
  Serious: No
  Sender: FDA-Public Use
  Company Number: US-HETERO-HET2021US00963

PATIENT

DRUGS (1)
  1. VALACYCLOVIR [Suspect]
     Active Substance: VALACYCLOVIR HYDROCHLORIDE
     Indication: PRODUCT USED FOR UNKNOWN INDICATION
     Dosage: 500 MG AS NEEDED (1 BOTTLE COUNT OF 30 TABLETS)
     Route: 048

REACTIONS (2)
  - Expired product administered [Unknown]
  - No adverse event [Unknown]
